FAERS Safety Report 4845034-8 (Version None)
Quarter: 2005Q4

REPORT INFORMATION
  Report Type: 
  Country: None (occurrence: None)
  Receive Date: 20051205
  Receipt Date: 20050929
  Transmission Date: 20060501
  Serious: Yes (Disabling, Other)
  Sender: FDA-Public Use
  Company Number: US-MERCK-0510USA00258

PATIENT
  Age: 57 Year
  Sex: Female

DRUGS (2)
  1. VIOXX [Suspect]
     Indication: ARTHRITIS
     Route: 048
  2. VIOXX [Suspect]
     Route: 048
     Dates: start: 19990101, end: 20040101

REACTIONS (6)
  - BACK PAIN [None]
  - CARDIAC DISORDER [None]
  - COUGH [None]
  - DEPRESSION [None]
  - LUNG DISORDER [None]
  - TRANSIENT ISCHAEMIC ATTACK [None]
